FAERS Safety Report 7830108-X (Version None)
Quarter: 2011Q4

REPORT INFORMATION
  Report Type: 
  Country: None (occurrence: None)
  Receive Date: 20111021
  Receipt Date: 20111013
  Transmission Date: 20120403
  Serious: Yes (Other)
  Sender: FDA-Public Use
  Company Number: US-UCBSA-036005

PATIENT
  Age: 55 Year
  Sex: Female
  Weight: 155 kg

DRUGS (30)
  1. PREMARIN [Concomitant]
     Indication: ATROPHIC VULVOVAGINITIS
     Dosage: 0.5 G PLUNGER
  2. MINOCIN [Concomitant]
  3. AZITHROMYCIN [Concomitant]
     Indication: RHEUMATOID ARTHRITIS
     Dosage: TUESDAY, THURSDAY AND SATURDAY
     Route: 048
     Dates: start: 20101201
  4. ELAVIL [Concomitant]
  5. RESTASIS [Concomitant]
     Indication: SJOGREN'S SYNDROME
     Dosage: 1 DROP 1XADAY
  6. FOSAMAX [Concomitant]
     Indication: OSTEOPENIA
  7. AMLODIPINE [Concomitant]
     Indication: RAYNAUD'S PHENOMENON
     Route: 048
     Dates: start: 20110101
  8. NITROSTAT [Concomitant]
     Indication: CHEST PAIN
     Route: 048
     Dates: start: 20110401
  9. MINOCIN [Concomitant]
     Indication: RHEUMATOID ARTHRITIS
     Dosage: 100 MG PELLETS ON MONDAY, WEDNESDAY AND FRIDAY (MWF), FROM 5 YEARS
     Route: 048
  10. OMEPRAZOLE/PRILOSEC [Concomitant]
     Indication: GASTROOESOPHAGEAL REFLUX DISEASE
  11. CLOBETASOL PROPIONATE [Concomitant]
     Indication: PSORIASIS
  12. COREG CR [Concomitant]
     Indication: OESOPHAGEAL SPASM
     Dosage: FROM 3 WEEKS
  13. KLONOPIN [Concomitant]
     Indication: ANXIETY
     Dosage: 2-3 PER DAY
  14. ELAVIL [Concomitant]
     Indication: PAIN
     Dosage: AT NIGHT
     Route: 048
     Dates: start: 20110615
  15. ELAVIL [Concomitant]
  16. COREG CR [Concomitant]
     Indication: PRINZMETAL ANGINA
     Dosage: FROM 3 WEEKS
  17. MUPIROCIN [Concomitant]
     Indication: EPISTAXIS
     Dosage: 2-3 TIMES A DAY
  18. ELAVIL [Concomitant]
     Indication: SLEEP DISORDER
     Dosage: AT NIGHT
     Route: 048
     Dates: start: 20110615
  19. AMITRIPTYLINE HCL [Concomitant]
     Dosage: QHS
  20. CIMZIA [Suspect]
     Indication: RHEUMATOID ARTHRITIS
     Route: 058
     Dates: start: 20110609
  21. ELAVIL [Concomitant]
     Indication: DEPRESSION
     Dosage: AT NIGHT
     Route: 048
     Dates: start: 20110615
  22. ELAVIL [Concomitant]
     Indication: NEUROPATHY PERIPHERAL
     Dosage: AT NIGHT
     Route: 048
     Dates: start: 20110615
  23. HYDROCODONE BT/IBUPROFEN [Concomitant]
     Indication: PAIN
     Dosage: 7.25/200 MG, DAILY DOSE: 14.50/400 MG
     Route: 048
     Dates: start: 20110101
  24. SAVELLA [Concomitant]
     Indication: PAIN
     Route: 048
     Dates: start: 20101001
  25. TRAZODONE HCL [Concomitant]
     Indication: SLEEP DISORDER
     Dosage: AT BEDTIME
  26. ELAVIL [Concomitant]
  27. ELAVIL [Concomitant]
  28. FLUROMETHOLONE [Concomitant]
     Indication: EYE INFLAMMATION
     Dosage: 1 DROP 3XA DAY, 0.1%, FROM 2 WEEKS
  29. TRAZODONE HCL [Concomitant]
     Indication: FIBROMYALGIA
     Dosage: AT BEDTIME
  30. SYNTHROID [Concomitant]
     Indication: AUTOIMMUNE THYROIDITIS
     Dosage: AT WAKEUP

REACTIONS (13)
  - PSORIASIS [None]
  - INJECTION SITE DISCOLOURATION [None]
  - CONDITION AGGRAVATED [None]
  - HERPES SIMPLEX [None]
  - INJECTION SITE SWELLING [None]
  - SYNCOPE [None]
  - SINUSITIS [None]
  - DIZZINESS [None]
  - CHEST WALL MASS [None]
  - SKIN DISCOLOURATION [None]
  - INJECTION SITE REACTION [None]
  - DRY THROAT [None]
  - ECCHYMOSIS [None]
